FAERS Safety Report 12218466 (Version 1)
Quarter: 2016Q1

REPORT INFORMATION
  Report Type: Spontaneous
  Country: US (occurrence: US)
  Receive Date: 20160329
  Receipt Date: 20160329
  Transmission Date: 20160526
  Serious: Yes (Other)
  Sender: FDA-Public Use
  Company Number: US-SHIRE-US201603395

PATIENT
  Sex: Male

DRUGS (2)
  1. AGRYLIN [Suspect]
     Active Substance: ANAGRELIDE HYDROCHLORIDE
     Dosage: 0.5 MG, 1X/DAY:QD (AT NIGHT)
     Route: 048
     Dates: start: 2001, end: 201504
  2. AGRYLIN [Suspect]
     Active Substance: ANAGRELIDE HYDROCHLORIDE
     Indication: PLATELET DISORDER
     Dosage: 1 MG (TWO 0.5 MG CAPSULES), 1X/DAY:QD (IN THE MORNING)
     Route: 048
     Dates: start: 2001, end: 201504

REACTIONS (9)
  - Swelling [Unknown]
  - Wound [Unknown]
  - Wound secretion [Unknown]
  - Atrial fibrillation [Recovered/Resolved]
  - Oedema peripheral [Unknown]
  - Right ventricular failure [Recovered/Resolved]
  - Dizziness [Unknown]
  - Dyspnoea [Unknown]
  - Adverse event [Unknown]
